FAERS Safety Report 8559103-2 (Version None)
Quarter: 2012Q3

REPORT INFORMATION
  Report Type: 
  Country: None (occurrence: None)
  Receive Date: 20120802
  Receipt Date: 20120723
  Transmission Date: 20120928
  Serious: No
  Sender: FDA-Public Use
  Company Number: US-BIOGENIDEC-2012BI026186

PATIENT
  Age: 44 Year
  Sex: Female

DRUGS (1)
  1. AVONEX [Suspect]
     Indication: MULTIPLE SCLEROSIS
     Route: 030
     Dates: start: 20101109

REACTIONS (6)
  - INJECTION SITE SWELLING [None]
  - HYPOAESTHESIA [None]
  - ERYTHEMA [None]
  - NERVE INJURY [None]
  - INJECTION SITE PAIN [None]
  - PAIN IN EXTREMITY [None]
